FAERS Safety Report 14807198 (Version 3)
Quarter: 2018Q3

REPORT INFORMATION
  Report Type: Spontaneous
  Country: FR (occurrence: FR)
  Receive Date: 20180425
  Receipt Date: 20180928
  Transmission Date: 20181010
  Serious: Yes (Life-Threatening, Other)
  Sender: FDA-Public Use
  Company Number: PHHY2016FR144998

PATIENT
  Age: 71 Year
  Sex: Female
  Weight: 60 kg

DRUGS (18)
  1. METHOTREXATE. [Suspect]
     Active Substance: METHOTREXATE
     Indication: DIFFUSE LARGE B-CELL LYMPHOMA
     Dosage: NP
     Route: 042
  2. ARACYTINE [Suspect]
     Active Substance: CYTARABINE
     Dosage: NP
     Route: 042
  3. MELPHALAN. [Suspect]
     Active Substance: MELPHALAN
     Dosage: UNK UNK,UNK
     Route: 042
  4. ARACYTINE [Suspect]
     Active Substance: CYTARABINE
     Indication: DIFFUSE LARGE B-CELL LYMPHOMA
     Dosage: UNK
     Route: 042
  5. BICNU [Suspect]
     Active Substance: CARMUSTINE
     Indication: DIFFUSE LARGE B-CELL LYMPHOMA
     Dosage: UNK
     Route: 042
  6. BICNU [Suspect]
     Active Substance: CARMUSTINE
     Dosage: NP
     Route: 042
  7. BLEOMYCINE [Suspect]
     Active Substance: BLEOMYCIN SULFATE
     Indication: DIFFUSE LARGE B-CELL LYMPHOMA
     Route: 042
  8. MELPHALAN. [Suspect]
     Active Substance: MELPHALAN
     Indication: DIFFUSE LARGE B-CELL LYMPHOMA
     Dosage: NP
     Route: 042
  9. ARACYTINE [Suspect]
     Active Substance: CYTARABINE
     Dosage: UNK UNK,UNK
     Route: 042
  10. CYCLOPHOSPHAMIDE. [Suspect]
     Active Substance: CYCLOPHOSPHAMIDE
     Indication: DIFFUSE LARGE B-CELL LYMPHOMA
     Dosage: NP
     Route: 042
  11. VINDESINE [Suspect]
     Active Substance: VINDESINE
     Indication: DIFFUSE LARGE B-CELL LYMPHOMA
     Dosage: NP
     Route: 042
  12. VINDESINE [Suspect]
     Active Substance: VINDESINE
     Dosage: UNK UNK,UNK
     Route: 042
  13. IMATINIB [Suspect]
     Active Substance: IMATINIB
     Indication: ACUTE MYELOID LEUKAEMIA
     Dosage: 800 MG, QD
     Route: 065
  14. DOXORUBICINE [Suspect]
     Active Substance: DOXORUBICIN
     Indication: DIFFUSE LARGE B-CELL LYMPHOMA
     Route: 042
  15. BICNU [Suspect]
     Active Substance: CARMUSTINE
     Dosage: UNK UNK,UNK
     Route: 042
  16. METHOTREXATE. [Suspect]
     Active Substance: METHOTREXATE
     Dosage: UNK UNK,UNK
     Route: 042
  17. CELLTOP [Suspect]
     Active Substance: ETOPOSIDE
     Indication: DIFFUSE LARGE B-CELL LYMPHOMA
     Dosage: UNK
     Route: 042
  18. BLEOMYCINE [Suspect]
     Active Substance: BLEOMYCIN SULFATE
     Dosage: NP
     Route: 042

REACTIONS (2)
  - Acute myeloid leukaemia recurrent [Not Recovered/Not Resolved]
  - Leukaemia [Not Recovered/Not Resolved]

NARRATIVE: CASE EVENT DATE: 20170801
